FAERS Safety Report 9090255 (Version 1)
Quarter: 2013Q1

REPORT INFORMATION
  Report Type: Report from Study
  Country: US (occurrence: US)
  Receive Date: 20130131
  Receipt Date: 20130131
  Transmission Date: 20140127
  Serious: No
  Sender: FDA-Public Use
  Company Number: US-ABBOTT-12P-163-1006345-00

PATIENT
  Sex: Female
  Weight: 65.83 kg

DRUGS (4)
  1. HUMIRA [Suspect]
     Indication: RHEUMATOID ARTHRITIS
     Route: 058
     Dates: start: 200605, end: 201202
  2. HUMIRA [Suspect]
     Route: 058
     Dates: start: 201208
  3. METHOTREXATE [Concomitant]
     Indication: RHEUMATOID ARTHRITIS
  4. KETORLAC [Concomitant]
     Indication: PAIN

REACTIONS (2)
  - Pain in extremity [Not Recovered/Not Resolved]
  - Congenital joint malformation [Not Recovered/Not Resolved]
